FAERS Safety Report 4557854-8 (Version None)
Quarter: 2005Q1

REPORT INFORMATION
  Report Type: 
  Country: None (occurrence: None)
  Receive Date: 20050121
  Receipt Date: 20050105
  Transmission Date: 20050727
  Serious: Yes (Other)
  Sender: FDA-Public Use
  Company Number: PHEH2005US00513

PATIENT
  Age: 51 Year
  Sex: Female

DRUGS (3)
  1. PREMPRO [Concomitant]
     Dates: start: 19970101, end: 19970101
  2. CLIMARA [Concomitant]
     Dosage: UNK, UNK
     Dates: start: 20000601, end: 20000101
  3. ESTRADERM [Suspect]
     Indication: HORMONE REPLACEMENT THERAPY
     Dosage: 0.05 MG, EVERY 3 DAYS
     Route: 062
     Dates: start: 19870101, end: 20021101

REACTIONS (23)
  - ABDOMINAL PAIN LOWER [None]
  - ANAEMIA [None]
  - ANGINA PECTORIS [None]
  - ANTI-HBS ANTIBODY POSITIVE [None]
  - ARTHRALGIA [None]
  - BREAST DISCHARGE [None]
  - BREAST MASS [None]
  - CEREBROVASCULAR ACCIDENT [None]
  - DYSURIA [None]
  - HAEMATURIA [None]
  - HEADACHE [None]
  - HEMIPARESIS [None]
  - HEMIPLEGIA [None]
  - HYPERHIDROSIS [None]
  - HYPOAESTHESIA [None]
  - MUSCLE SPASMS [None]
  - NECK INJURY [None]
  - NECK PAIN [None]
  - NEPHROLITHIASIS [None]
  - PAIN IN EXTREMITY [None]
  - POLLAKIURIA [None]
  - ROAD TRAFFIC ACCIDENT [None]
  - WEIGHT INCREASED [None]
